APPROVED DRUG PRODUCT: PLAN B ONE-STEP
Active Ingredient: LEVONORGESTREL
Strength: 1.5MG
Dosage Form/Route: TABLET;ORAL
Application: N021998 | Product #001
Applicant: FOUNDATION CONSUMER HEALTHCARE LLC
Approved: Jul 10, 2009 | RLD: Yes | RS: Yes | Type: OTC